FAERS Safety Report 7763949-8 (Version None)
Quarter: 2011Q3

REPORT INFORMATION
  Report Type: 
  Country: None (occurrence: None)
  Receive Date: 20110921
  Receipt Date: 20110908
  Transmission Date: 20111222
  Serious: Yes (Hospitalization, Other)
  Sender: FDA-Public Use
  Company Number: US-ELI_LILLY_AND_COMPANY-US201001006150

PATIENT
  Sex: Male

DRUGS (10)
  1. PREDNISONE [Concomitant]
     Dosage: 15 MG, QD
  2. FORTEO [Suspect]
     Dosage: 20 UG, QD
  3. FOSAMAX [Concomitant]
     Dosage: UNK
  4. FORTEO [Suspect]
     Indication: OSTEOPOROSIS
     Dosage: 20 UG, DAILY (1/D)
     Dates: start: 20091201
  5. AZATHIOPRINE [Concomitant]
     Dosage: 100 MG, TID
  6. TIMOLOL MALEATE [Concomitant]
     Indication: OCULAR HYPERTENSION
     Dosage: 5 ML, QD
  7. FORTEO [Suspect]
     Dosage: 20 UG, QD
  8. PYRIDOSTIGMINE BROMIDE [Concomitant]
     Dosage: 60 MG, QID
  9. FLUTICASONE PROPIONATE [Concomitant]
     Indication: HYPERSENSITIVITY
  10. LISINOPRIL [Concomitant]
     Indication: HYPERTENSION
     Dosage: 20 MG, UNK

REACTIONS (19)
  - ABDOMINAL DISTENSION [None]
  - GAIT DISTURBANCE [None]
  - NASOPHARYNGITIS [None]
  - ARTHRALGIA [None]
  - PROSTATOMEGALY [None]
  - PERIPHERAL NERVE OPERATION [None]
  - PROSTATE CANCER [None]
  - VERTEBROPLASTY [None]
  - MUSCLE SPASMS [None]
  - MYALGIA [None]
  - FATIGUE [None]
  - FRACTURE [None]
  - CHOLECYSTECTOMY [None]
  - THORACIC VERTEBRAL FRACTURE [None]
  - MUSCULOSKELETAL CHEST PAIN [None]
  - GASTROINTESTINAL BACTERIAL INFECTION [None]
  - SENSATION OF PRESSURE [None]
  - BACK PAIN [None]
  - COUGH [None]
